FAERS Safety Report 8809993 (Version 6)
Quarter: 2012Q4

REPORT INFORMATION
  Report Type: 
  Country: US (occurrence: US)
  Receive Date: 20120926
  Receipt Date: 20121217
  Transmission Date: 20130627
  Serious: No
  Sender: FDA-Public Use
  Company Number: US-VERTEX PHARMACEUTICAL INC.-2012-021091

PATIENT
  Age: 56 Year
  Sex: Male
  Weight: 147 kg

DRUGS (9)
  1. VX-950 (TELAPREVIR) [Suspect]
     Indication: HEPATITIS C
     Dosage: 750 mg, tid
     Route: 048
     Dates: start: 20120909
  2. PEGASYS [Concomitant]
     Indication: HEPATITIS C
     Dosage: 180 ?g, qw
     Route: 058
     Dates: start: 20120906
  3. RIBAVIRIN [Concomitant]
     Indication: HEPATITIS C
     Dosage: 600 mg, bid
     Route: 048
     Dates: start: 20120909
  4. FINASTERIDE [Concomitant]
     Dosage: 5 mg, UNK
  5. PRAVASTATIN [Concomitant]
     Dosage: 10 mg, UNK
     Route: 048
  6. TERAZOSIN [Concomitant]
     Dosage: 1 mg, UNK
  7. LISINOPRIL [Concomitant]
     Dosage: 2.5 mg, UNK
     Route: 048
  8. PRILOSEC                           /00661201/ [Concomitant]
     Dosage: 10 mg, UNK
  9. IBUPROFEN [Concomitant]
     Dosage: 800 mg, UNK

REACTIONS (14)
  - Pulmonary oedema [Recovered/Resolved]
  - Pulmonary congestion [Unknown]
  - Depression [Unknown]
  - Insomnia [Recovered/Resolved]
  - Gait disturbance [Unknown]
  - Cough [Recovered/Resolved]
  - Myalgia [Unknown]
  - Back pain [Unknown]
  - Dry mouth [Unknown]
  - Dry skin [Unknown]
  - Fatigue [Not Recovered/Not Resolved]
  - Rash pruritic [Recovered/Resolved]
  - Pruritus [Unknown]
  - Skin exfoliation [Unknown]
